FAERS Safety Report 8869700 (Version 1)
Quarter: 2012Q4

REPORT INFORMATION
  Report Type: Report from Study
  Country: CA (occurrence: CA)
  Receive Date: 20121028
  Receipt Date: 20121028
  Transmission Date: 20130627
  Serious: Yes (Other)
  Sender: FDA-Public Use
  Company Number: CA-JNJFOC-20121010431

PATIENT
  Age: 45 Year
  Sex: Female
  Weight: 47 kg

DRUGS (2)
  1. REMICADE [Suspect]
     Indication: CROHN^S DISEASE
     Route: 042
  2. IRON [Concomitant]
     Indication: ANAEMIA
     Route: 065

REACTIONS (5)
  - Pneumonia [Unknown]
  - Ear pain [Unknown]
  - Chest pain [Unknown]
  - Oropharyngeal pain [Unknown]
  - Fatigue [Unknown]
